FAERS Safety Report 22159735 (Version 1)
Quarter: 2023Q1

REPORT INFORMATION
  Report Type: Other
  Country: PK (occurrence: None)
  Receive Date: 20230331
  Receipt Date: 20230331
  Transmission Date: 20230417
  Serious: Yes (Other)
  Sender: FDA-Public Use
  Company Number: PK-ROCHE-3318204

PATIENT
  Age: 62 Year
  Sex: Male

DRUGS (2)
  1. RITUXIMAB [Suspect]
     Active Substance: RITUXIMAB
     Indication: Diffuse large B-cell lymphoma
     Dosage: START DATE: 09/MAR/2023. PATIENT ALREADY RECEIVED THE 6 CYCLES OF THE SUSPECT DRUG
     Route: 041
  2. POLIVY [Suspect]
     Active Substance: POLATUZUMAB VEDOTIN-PIIQ
     Indication: Diffuse large B-cell lymphoma
     Dosage: START DATE: 09/MAR/2023. PRESCRIBED POLIVY FOR 6 CYCLES WITH INTERVAL OF 3 WEEKLY.
     Route: 041

REACTIONS (1)
  - Diffuse large B-cell lymphoma recurrent [Unknown]

NARRATIVE: CASE EVENT DATE: 20230308
